FAERS Safety Report 6813919-9 (Version None)
Quarter: 2010Q3

REPORT INFORMATION
  Report Type: 
  Country: None (occurrence: None)
  Receive Date: 20100702
  Receipt Date: 20100618
  Transmission Date: 20110219
  Serious: Yes (Other)
  Sender: FDA-Public Use
  Company Number: IL-RANBAXY-2010RR-35273

PATIENT

DRUGS (2)
  1. SIMVASTATIN [Suspect]
     Dosage: 200 MG, UNK
  2. METFORMIN HCL [Suspect]
     Dosage: 22 G, UNK

REACTIONS (4)
  - DIABETES INSIPIDUS [None]
  - OVERDOSE [None]
  - PANCREATITIS [None]
  - RENAL IMPAIRMENT [None]
